FAERS Safety Report 12527573 (Version 1)
Quarter: 2016Q3

REPORT INFORMATION
  Report Type: Report from Study
  Country: PL (occurrence: PL)
  Receive Date: 20160705
  Receipt Date: 20160705
  Transmission Date: 20161109
  Serious: Yes (Life-Threatening, Hospitalization, Other)
  Sender: FDA-Public Use
  Company Number: PL-ROCHE-1758896

PATIENT
  Age: 37 Year
  Sex: Male
  Weight: 80 kg

DRUGS (6)
  1. METHOTREXATE. [Concomitant]
     Active Substance: METHOTREXATE
     Indication: PRODUCT USED FOR UNKNOWN INDICATION
     Dosage: 20MG/WEEKS; 25MG S.C.
     Route: 048
     Dates: start: 201312, end: 201512
  2. DIPROPHOS [Suspect]
     Active Substance: BECLOMETHASONE DIPROPIONATE\BETAMETHASONE SODIUM PHOSPHATE
     Indication: RHEUMATOID ARTHRITIS
     Dosage: 1 AMPOULE, ONCE
     Route: 030
     Dates: start: 20160525, end: 20160525
  3. ROACTEMRA [Suspect]
     Active Substance: TOCILIZUMAB
     Indication: RHEUMATOID ARTHRITIS
  4. ENCORTON [Suspect]
     Active Substance: PREDNISONE
     Indication: RHEUMATOID ARTHRITIS
     Dosage: DOSE 15-40 MG
     Route: 048
     Dates: start: 19931205
  5. AXTIL [Concomitant]
     Indication: HYPERTENSION
     Route: 048
     Dates: start: 20131201
  6. ROACTEMRA [Suspect]
     Active Substance: TOCILIZUMAB
     Indication: JUVENILE IDIOPATHIC ARTHRITIS
     Route: 042
     Dates: start: 20151020, end: 20160504

REACTIONS (4)
  - Drug abuse [Unknown]
  - Abscess limb [Recovering/Resolving]
  - Staphylococcal sepsis [Recovered/Resolved]
  - C-reactive protein increased [Recovering/Resolving]

NARRATIVE: CASE EVENT DATE: 20160602
